FAERS Safety Report 5195045-0 (Version None)
Quarter: 2006Q4

REPORT INFORMATION
  Report Type: 
  Country: None (occurrence: None)
  Receive Date: 20061229
  Receipt Date: 20061221
  Transmission Date: 20070319
  Serious: Yes (Hospitalization)
  Sender: FDA-Public Use
  Company Number: JP-JNJFOC-20061206628

PATIENT
  Age: 49 Year
  Sex: Male

DRUGS (2)
  1. RISPERDAL [Suspect]
     Indication: DRUG USE FOR UNKNOWN INDICATION
     Route: 048
  2. LEVOMEPROMAZINE MALEATE [Concomitant]
     Route: 048

REACTIONS (3)
  - ILEUS [None]
  - PARKINSONISM [None]
  - PNEUMONIA ASPIRATION [None]
